FAERS Safety Report 6366865-1 (Version None)
Quarter: 2009Q3

REPORT INFORMATION
  Report Type: 
  Country: None (occurrence: None)
  Receive Date: 20090921
  Receipt Date: 20090907
  Transmission Date: 20100115
  Serious: Yes (Death, Hospitalization)
  Sender: FDA-Public Use
  Company Number: GB-MYLANLABS-2009S1015793

PATIENT
  Age: 58 Year
  Sex: Male

DRUGS (3)
  1. WARFARIN SODIUM [Suspect]
     Indication: DEEP VEIN THROMBOSIS
     Route: 048
  2. ANTIBIOTICS [Concomitant]
     Indication: ENDOCARDITIS
     Route: 042
  3. HEPARIN [Concomitant]
     Indication: DEEP VEIN THROMBOSIS

REACTIONS (4)
  - INTERNATIONAL NORMALISED RATIO INCREASED [None]
  - PNEUMONIA [None]
  - SKIN NECROSIS [None]
  - THROMBOCYTOPENIA [None]
